FAERS Safety Report 8423591-2 (Version None)
Quarter: 2012Q2

REPORT INFORMATION
  Report Type: 
  Country: None (occurrence: None)
  Receive Date: 20120608
  Receipt Date: 20120529
  Transmission Date: 20120825
  Serious: Yes (Other)
  Sender: FDA-Public Use
  Company Number: US-ABBOTT-12P-163-0940630-00

PATIENT
  Sex: Male
  Weight: 115.77 kg

DRUGS (3)
  1. HUMIRA [Suspect]
     Indication: PSORIASIS
     Route: 058
     Dates: start: 20120101, end: 20120301
  2. ADVAIR DISKUS 100/50 [Concomitant]
     Indication: CHRONIC OBSTRUCTIVE PULMONARY DISEASE
  3. TENOVATE CREAM [Concomitant]
     Indication: PSORIASIS
     Route: 061

REACTIONS (3)
  - BENIGN LUNG NEOPLASM [None]
  - DYSPNOEA [None]
  - PLEURAL RUB [None]
